FAERS Safety Report 11204890 (Version 1)
Quarter: 2015Q2

REPORT INFORMATION
  Report Type: Spontaneous
  Country: US (occurrence: US)
  Receive Date: 20150622
  Receipt Date: 20150622
  Transmission Date: 20150821
  Serious: Yes (Other)
  Sender: FDA-Public Use
  Company Number: US-GLENMARK GENERICS (EUROPE) LTD-2015GMK017367

PATIENT
  Age: 17 Year
  Sex: Female

DRUGS (1)
  1. TOPIRAMATE. [Suspect]
     Active Substance: TOPIRAMATE
     Indication: MIGRAINE WITH AURA
     Dosage: 25 MG, BID

REACTIONS (8)
  - Self-induced vomiting [None]
  - Disease recurrence [None]
  - Product use issue [None]
  - Weight decreased [None]
  - Product use issue [Unknown]
  - Drug abuse [None]
  - Eating disorder [Unknown]
  - Binge eating [None]
